FAERS Safety Report 6930704-8 (Version None)
Quarter: 2010Q3

REPORT INFORMATION
  Report Type: 
  Country: None (occurrence: None)
  Receive Date: 20100810
  Receipt Date: 20090407
  Transmission Date: 20110219
  Serious: Yes (Hospitalization, Disabling)
  Sender: FDA-Public Use
  Company Number: 2009156813

PATIENT
  Age: 87 Year
  Sex: Male
  Weight: 77.1 kg

DRUGS (15)
  1. FLAGYL [Suspect]
     Indication: DIARRHOEA
     Dosage: 500 MG, 3X/DAY, ORAL
     Route: 048
     Dates: start: 20080529, end: 20080912
  2. VIBRAMYCIN [Suspect]
     Dosage: ORAL
     Route: 048
     Dates: start: 20080101
  3. VANCOMYCIN [Suspect]
     Dosage: ORAL
     Route: 048
     Dates: start: 20080912
  4. VANCOCIN (VANCOMYCIN HYDROCHLORIDE) [Suspect]
     Dosage: 250 MG
  5. ALPRAZOLAM [Concomitant]
  6. LOPID [Concomitant]
  7. DIURIL (CHLOROTHIAZIDE) [Concomitant]
  8. MULTIVITAMINS (ASCORBIC ACID, ERGOCALCIFEROL, FOLIC ACID, NICOTINAMIDE [Concomitant]
  9. GEMFIBROZIL [Concomitant]
  10. DILTIAZEM [Concomitant]
  11. CHLOROTHIAZIDE [Concomitant]
  12. DOXAZOSIN MESYLATE [Concomitant]
  13. FLOMAX [Concomitant]
  14. CYCLOBENZAPRINE [Concomitant]
  15. HYOSCYAMINE (HYOSCYAMINE) [Concomitant]

REACTIONS (5)
  - HYPERAESTHESIA [None]
  - HYPOAESTHESIA [None]
  - NEUROPATHY PERIPHERAL [None]
  - PARAESTHESIA [None]
  - WEIGHT DECREASED [None]
